FAERS Safety Report 19886367 (Version 1)
Quarter: 2021Q3

REPORT INFORMATION
  Report Type: Spontaneous
  Country: FR (occurrence: FR)
  Receive Date: 20210927
  Receipt Date: 20210927
  Transmission Date: 20211014
  Serious: Yes (Hospitalization)
  Sender: FDA-Public Use
  Company Number: FR-ACCORD-239642

PATIENT
  Age: 78 Year
  Sex: Male
  Weight: 67 kg

DRUGS (7)
  1. FLUOROURACIL. [Suspect]
     Active Substance: FLUOROURACIL
     Indication: COLORECTAL CANCER
     Dosage: D1 668 MG D2 4008MG
     Route: 042
     Dates: start: 20210527
  2. FOLINIC ACID [Suspect]
     Active Substance: LEUCOVORIN
     Indication: COLORECTAL CANCER
     Route: 042
     Dates: start: 20210527
  3. AVASTIN [Suspect]
     Active Substance: BEVACIZUMAB
     Indication: COLORECTAL CANCER
     Dosage: 25 MG / ML
     Route: 042
     Dates: start: 20210527
  4. VELMETIA [Concomitant]
     Active Substance: METFORMIN\SITAGLIPTIN
     Dosage: 50 MG / 1000 MG
  5. KARDEGIC [Concomitant]
     Active Substance: ASPIRIN DL-LYSINE
  6. AMAREL [Concomitant]
     Active Substance: GLIMEPIRIDE
  7. INEGY [Concomitant]
     Active Substance: EZETIMIBE\SIMVASTATIN
     Dosage: 10 MG / 40 MG

REACTIONS (1)
  - Ischaemic stroke [Recovering/Resolving]

NARRATIVE: CASE EVENT DATE: 20210908
